FAERS Safety Report 7215720-3 (Version None)
Quarter: 2011Q1

REPORT INFORMATION
  Report Type: 
  Country: None (occurrence: None)
  Receive Date: 20110104
  Receipt Date: 20110104
  Transmission Date: 20110831
  Serious: Yes (Hospitalization, Disabling, Other)
  Sender: FDA-Public Use
  Company Number: None

PATIENT
  Age: 39 Year
  Sex: Female
  Weight: 79.3795 kg

DRUGS (2)
  1. BOTOX [Suspect]
     Dates: start: 20100224, end: 20100224
  2. BOTOX [Suspect]
     Dates: start: 20100609, end: 20100609

REACTIONS (18)
  - PARAESTHESIA [None]
  - MUSCULAR WEAKNESS [None]
  - SENSORY DISTURBANCE [None]
  - COORDINATION ABNORMAL [None]
  - ACTIVITIES OF DAILY LIVING IMPAIRED [None]
  - HYPOAESTHESIA ORAL [None]
  - FATIGUE [None]
  - PAIN [None]
  - DIARRHOEA [None]
  - BLOOD PRESSURE DECREASED [None]
  - PYREXIA [None]
  - GAIT DISTURBANCE [None]
  - CHILLS [None]
  - HYPOAESTHESIA [None]
  - URINARY INCONTINENCE [None]
  - VOMITING [None]
  - BALANCE DISORDER [None]
  - PARAESTHESIA ORAL [None]
